FAERS Safety Report 4621028-2 (Version None)
Quarter: 2005Q1

REPORT INFORMATION
  Report Type: 
  Country: None (occurrence: None)
  Receive Date: 20050325
  Receipt Date: 20050317
  Transmission Date: 20050727
  Serious: Yes (Hospitalization)
  Sender: FDA-Public Use
  Company Number: 2005AP01805

PATIENT
  Age: 29 Year
  Sex: Female

DRUGS (12)
  1. QUETIAPINE FUMARATE [Suspect]
     Dosage: 150 MG DAILY PO
     Route: 048
     Dates: end: 20030213
  2. STILNOX [Suspect]
     Indication: CONVULSION
  3. VALPROATE SODIUM [Suspect]
     Dosage: 1000 MG DAILY PO
     Route: 048
     Dates: end: 20030213
  4. VALPROATE SODIUM [Suspect]
  5. VENLAFAXINE HCL [Suspect]
     Dosage: 150 MG DAILY PO
     Route: 048
     Dates: end: 20030213
  6. VENLAFAXINE [Suspect]
  7. ACETAMINOPHEN [Concomitant]
  8. SANDOMIGRAN [Concomitant]
  9. MERSYNDOL [Concomitant]
  10. DIAZEPAM [Concomitant]
  11. PHENERGAN [Concomitant]
  12. VENTOLIN HFA [Concomitant]

REACTIONS (2)
  - DRUG INTERACTION [None]
  - NEUROLEPTIC MALIGNANT SYNDROME [None]
